APPROVED DRUG PRODUCT: THYQUIDITY
Active Ingredient: LEVOTHYROXINE SODIUM
Strength: 100MCG/5ML
Dosage Form/Route: SOLUTION;ORAL
Application: N214047 | Product #001
Applicant: JEROME STEVENS PHARMACEUTICALS INC
Approved: Nov 30, 2020 | RLD: Yes | RS: Yes | Type: RX

PATENTS:
Patent 9050307 | Expires: Aug 6, 2031